FAERS Safety Report 23315864 (Version 2)
Quarter: 2024Q1

REPORT INFORMATION
  Report Type: Report from Study
  Country: CN (occurrence: CN)
  Receive Date: 20231219
  Receipt Date: 20240117
  Transmission Date: 20240409
  Serious: No
  Sender: FDA-Public Use
  Company Number: CN-PFIZER INC-PV202300202456

PATIENT
  Age: 96 Year
  Sex: Female

DRUGS (32)
  1. NIRMATRELVIR\RITONAVIR [Suspect]
     Active Substance: NIRMATRELVIR\RITONAVIR
     Indication: COVID-19 treatment
     Dosage: [NIRMATRELVIR 300 MG]/[RITONAVIR 100 MG], 2X/DAY
     Route: 048
     Dates: start: 20220423, end: 20220503
  2. OXYGEN [Concomitant]
     Active Substance: OXYGEN
     Indication: COVID-19 treatment
     Dosage: INHALATION
     Route: 055
     Dates: start: 20220422, end: 20220426
  3. CLOPIDOGREL BISULFATE [Concomitant]
     Active Substance: CLOPIDOGREL BISULFATE
     Indication: Coronary artery disease
     Dosage: UNK
     Route: 048
     Dates: start: 20220422, end: 20220426
  4. LOSARTAN POTASSIUM [Concomitant]
     Active Substance: LOSARTAN POTASSIUM
     Indication: Hypertension
     Dosage: UNK
     Route: 048
     Dates: start: 20220422, end: 20220426
  5. ATORVASTATIN CALCIUM [Concomitant]
     Active Substance: ATORVASTATIN CALCIUM
     Indication: Coronary artery disease
     Dosage: UNK
     Route: 048
     Dates: start: 20220422, end: 20220426
  6. AMIODARONE [Concomitant]
     Active Substance: AMIODARONE
     Indication: Coronary artery disease
     Dosage: UNK
     Route: 048
     Dates: start: 20220424, end: 20220426
  7. HEPARIN SODIUM [Concomitant]
     Active Substance: HEPARIN SODIUM
     Indication: COVID-19 treatment
     Dosage: UNK
     Route: 058
     Dates: start: 20220424, end: 20220426
  8. CEFEPIME HYDROCHLORIDE [Concomitant]
     Active Substance: CEFEPIME HYDROCHLORIDE
     Indication: Bacterial infection
     Dosage: UNK
     Route: 042
     Dates: start: 20220425, end: 20220425
  9. CEFEPIME HYDROCHLORIDE [Concomitant]
     Active Substance: CEFEPIME HYDROCHLORIDE
     Indication: Inflammation
  10. ENTERAL NUTRITIONAL SUSPENSION (TPF) [Concomitant]
     Indication: Nutritional supplementation
     Dosage: UNK
     Route: 045
     Dates: start: 20220426, end: 20220426
  11. ENTERAL NUTRITIONAL SUSPENSION (TPF) [Concomitant]
     Dosage: UNK
     Route: 045
     Dates: start: 20220503, end: 20220504
  12. FUROSEMIDE [Concomitant]
     Active Substance: FUROSEMIDE
     Indication: Cardiac failure
     Dosage: UNK
     Route: 042
     Dates: start: 20220426, end: 20220426
  13. HEPARIN SODIUM [Concomitant]
     Active Substance: HEPARIN SODIUM
     Indication: COVID-19 treatment
     Dosage: UNK
     Route: 065
     Dates: start: 20220426, end: 20220426
  14. MOXIFLOXACIN HYDROCHLORIDE [Concomitant]
     Active Substance: MOXIFLOXACIN HYDROCHLORIDE\MOXIFLOXACIN HYDROCHLORIDE MONOHYDRATE
     Indication: Pneumonia
     Dosage: UNK
     Route: 042
     Dates: start: 20220426, end: 20220430
  15. ENOXAPARIN SODIUM [Concomitant]
     Active Substance: ENOXAPARIN SODIUM
     Indication: COVID-19 treatment
     Dosage: UNK
     Route: 058
     Dates: start: 20220426, end: 20220504
  16. HERBALS\MENTHOL [Concomitant]
     Active Substance: HERBALS\MENTHOL
     Indication: COVID-19 treatment
     Dosage: UNK
     Route: 045
     Dates: start: 20220426, end: 20220504
  17. HERBALS [Concomitant]
     Active Substance: HERBALS
     Indication: COVID-19 treatment
     Dosage: UNK
     Route: 042
     Dates: start: 20220427, end: 20220504
  18. MAGNESIUM ISOGLYCYRRHIZINATE [Concomitant]
     Active Substance: MAGNESIUM ISOGLYCYRRHIZINATE
     Indication: Liver function test abnormal
     Dosage: UNK
     Route: 042
     Dates: start: 20220429, end: 20220503
  19. PIPERACILLIN AND TAZOBACTAM [Concomitant]
     Active Substance: PIPERACILLIN SODIUM\TAZOBACTAM SODIUM
     Indication: Pneumonia
     Dosage: TEZSTAR
     Route: 042
     Dates: start: 20220429, end: 20220504
  20. THYMALFASIN [Concomitant]
     Active Substance: THYMALFASIN
     Indication: COVID-19 treatment
     Dosage: UNK
     Route: 058
     Dates: start: 20220501, end: 20220504
  21. METHYLPREDNISOLONE SODIUM SUCCINATE [Concomitant]
     Active Substance: METHYLPREDNISOLONE SODIUM SUCCINATE
     Indication: COVID-19 treatment
     Dosage: MILLOXONE
     Route: 042
     Dates: start: 20220502, end: 20220503
  22. ESOMEPRAZOLE SODIUM [Concomitant]
     Active Substance: ESOMEPRAZOLE SODIUM
     Indication: Prophylaxis against gastrointestinal ulcer
     Dosage: UNK
     Route: 042
     Dates: start: 20220503, end: 20220504
  23. AMIODARONE HYDROCHLORIDE [Concomitant]
     Active Substance: AMIODARONE HYDROCHLORIDE
     Indication: Coronary artery disease
     Dosage: UNK
     Route: 042
     Dates: start: 20220424, end: 20220424
  24. AMIODARONE HYDROCHLORIDE [Concomitant]
     Active Substance: AMIODARONE HYDROCHLORIDE
     Dosage: UNK
     Route: 050
     Dates: start: 20220503, end: 20220503
  25. DEXAMETHASONE SODIUM PHOSPHATE [Concomitant]
     Active Substance: DEXAMETHASONE PHOSPHATE\DEXAMETHASONE SODIUM PHOSPHATE
     Indication: COVID-19 treatment
     Dosage: UNK
     Route: 042
     Dates: start: 20220425, end: 20220425
  26. MICONAZOLE NITRATE [Concomitant]
     Active Substance: MICONAZOLE NITRATE
     Indication: Fungal infection
     Dosage: POWDER, TAPICAL (TOP)
     Route: 061
     Dates: start: 20220428
  27. RECOMBINANT HUMAN BRAIN NATRIURETIC PEPTIDE [Concomitant]
     Indication: Cardiac failure
     Dosage: UNK
     Route: 042
     Dates: start: 20220430, end: 20220430
  28. NOREPINEPHRINE BITARTRATE [Concomitant]
     Active Substance: NOREPINEPHRINE BITARTRATE
     Indication: Blood pressure decreased
     Dosage: UNK
     Route: 050
     Dates: start: 20220501, end: 20220501
  29. GLYCERIN [Concomitant]
     Active Substance: GLYCERIN
     Indication: Defaecation disorder
     Dosage: GLYCERIN CONTAINING GLYCERIN
     Route: 054
     Dates: start: 20220501, end: 20220501
  30. SODIUM POLYSTYRENE SULFONATE [Concomitant]
     Active Substance: SODIUM POLYSTYRENE SULFONATE
     Indication: Defaecation disorder
     Dosage: SODIUM POLYSTYRENE SULTANATE POWDER
     Route: 045
     Dates: start: 20220503, end: 20220503
  31. MIDAZOLAM [Concomitant]
     Active Substance: MIDAZOLAM
     Indication: Sedation
     Dosage: UNK
     Route: 050
     Dates: start: 20220503, end: 20220503
  32. REMIFENTANIL HYDROCHLORIDE [Concomitant]
     Active Substance: REMIFENTANIL HYDROCHLORIDE
     Indication: Sedation
     Dosage: UNK
     Route: 050
     Dates: start: 20220503, end: 20220503

REACTIONS (1)
  - Overdose [Unknown]
